FAERS Safety Report 4326303-7 (Version None)
Quarter: 2004Q1

REPORT INFORMATION
  Report Type: 
  Country: None (occurrence: None)
  Receive Date: 20040324
  Receipt Date: 20040303
  Transmission Date: 20041129
  Serious: Yes (Disabling)
  Sender: FDA-Public Use
  Company Number: USA040260151

PATIENT
  Age: 43 Year
  Sex: Male

DRUGS (6)
  1. CIALIS [Suspect]
     Indication: ERECTILE DYSFUNCTION
     Dosage: 20 MG DAY
     Dates: start: 20040222
  2. OXYCONTIN [Concomitant]
  3. NEURONTIN [Concomitant]
  4. DIAZEPAM [Concomitant]
  5. PERCOCET [Concomitant]
  6. DURAGESIC [Concomitant]

REACTIONS (3)
  - HEADACHE [None]
  - IMPRISONMENT [None]
  - URINE AMPHETAMINE POSITIVE [None]
